FAERS Safety Report 6803426-1 (Version None)
Quarter: 2010Q2

REPORT INFORMATION
  Report Type: 
  Country: None (occurrence: None)
  Receive Date: 20100628
  Receipt Date: 20100616
  Transmission Date: 20101027
  Serious: Yes (Death, Other)
  Sender: FDA-Public Use
  Company Number: JP-PFIZER INC-2010027925

PATIENT
  Age: 69 Year
  Sex: Male
  Weight: 70 kg

DRUGS (7)
  1. SILDENAFIL CITRATE [Suspect]
     Indication: PULMONARY ARTERIAL HYPERTENSION
     Dosage: 20 MG, 3X/DAY
     Route: 048
     Dates: start: 20100108
  2. PROCYLIN [Concomitant]
     Dosage: UNK
     Route: 048
     Dates: start: 19990101, end: 20100228
  3. WARFARIN POTASSIUM [Concomitant]
     Dosage: UNK
     Route: 048
     Dates: start: 19990101, end: 20100228
  4. SELBEX [Concomitant]
     Dosage: UNK
     Route: 048
     Dates: start: 20000101
  5. LASIX [Concomitant]
     Dosage: UNK
     Route: 048
     Dates: start: 20060801
  6. PURSENNID [Concomitant]
     Dosage: UNK
     Route: 048
     Dates: start: 20020101
  7. ALOSENN [Concomitant]
     Dosage: UNK
     Route: 048
     Dates: start: 20020101

REACTIONS (2)
  - BRONCHIECTASIS [None]
  - HAEMOPTYSIS [None]
